FAERS Safety Report 5642172-7 (Version None)
Quarter: 2008Q1

REPORT INFORMATION
  Report Type: 
  Country: None (occurrence: None)
  Receive Date: 20080131
  Receipt Date: 20071109
  Transmission Date: 20080703
  Serious: No
  Sender: FDA-Public Use
  Company Number: 163-21880-07091583

PATIENT
  Age: 61 Year
  Sex: Female

DRUGS (9)
  1. REVLIMID [Suspect]
     Indication: MULTIPLE MYELOMA
     Dosage: 25 MG, 1 IN 1 D, ORAL
     Route: 048
     Dates: start: 20070807
  2. DEXAMETHASONE TAB [Concomitant]
  3. LORAZEPAM [Concomitant]
  4. WATER PILL (DIURETICS) [Concomitant]
  5. OMEPRAZOLE [Concomitant]
  6. VITAMIN SUPPLEMENT (VITAMINS) [Concomitant]
  7. FISH OIL (FISH OIL) [Concomitant]
  8. GLUCOSAMINE (GLUCOSAMINE) [Concomitant]
  9. CALCIUM SUPPLEMENT (CALCIUM) [Concomitant]

REACTIONS (3)
  - ABDOMINAL DISTENSION [None]
  - GASTROINTESTINAL PAIN [None]
  - NAUSEA [None]
